FAERS Safety Report 15226822 (Version 1)
Quarter: 2018Q3

REPORT INFORMATION
  Report Type: Report from Study
  Country: US (occurrence: US)
  Receive Date: 20180801
  Receipt Date: 20180801
  Transmission Date: 20181010
  Serious: Yes (Other)
  Sender: FDA-Public Use
  Company Number: US-SA-2018SA056404

PATIENT
  Age: 44 Year
  Sex: Female

DRUGS (5)
  1. INSULIN GLARGINE/LIXISENATIDE [Suspect]
     Active Substance: INSULIN GLARGINE\LIXISENATIDE
     Indication: TYPE 2 DIABETES MELLITUS
     Dosage: 15 DF
     Route: 058
     Dates: start: 20180121
  2. INSULIN GLARGINE/LIXISENATIDE [Suspect]
     Active Substance: INSULIN GLARGINE\LIXISENATIDE
     Dosage: 30 DF
     Route: 058
     Dates: start: 2018
  3. METFORMIN [Concomitant]
     Active Substance: METFORMIN HYDROCHLORIDE
     Dosage: UNK UNK,UNK
     Route: 065
     Dates: start: 2018
  4. METFORMIN [Concomitant]
     Active Substance: METFORMIN HYDROCHLORIDE
     Indication: TYPE 2 DIABETES MELLITUS
     Dosage: UNK UNK,UNK
     Route: 065
  5. INSULIN GLARGINE/LIXISENATIDE [Suspect]
     Active Substance: INSULIN GLARGINE\LIXISENATIDE
     Dosage: 25 DF
     Route: 058
     Dates: start: 2018

REACTIONS (13)
  - Blood glucose increased [Unknown]
  - Gastrooesophageal reflux disease [Unknown]
  - Thyroid disorder [Unknown]
  - Intentional product misuse [Unknown]
  - Glycosylated haemoglobin increased [Unknown]
  - Feeling abnormal [Unknown]
  - Dysphagia [Unknown]
  - Drug dose omission [Unknown]
  - Oesophageal stenosis [Unknown]
  - Hiatus hernia [Unknown]
  - Diarrhoea [Recovering/Resolving]
  - Dyspepsia [Unknown]
  - Arthralgia [Unknown]

NARRATIVE: CASE EVENT DATE: 2018
